FAERS Safety Report 6304054-7 (Version None)
Quarter: 2009Q3

REPORT INFORMATION
  Report Type: 
  Country: None (occurrence: None)
  Receive Date: 20090810
  Receipt Date: 20090810
  Transmission Date: 20100115
  Serious: Yes (Other)
  Sender: FDA-Public Use
  Company Number: None

PATIENT
  Age: 47 Year
  Sex: Male
  Weight: 141.5223 kg

DRUGS (1)
  1. ANTIPYRINE BENZOCAINE OTIC 10 ML BAUSCH + LOMB/CVS [Suspect]
     Indication: EAR PAIN
     Dosage: 4 DROPS 4X PER DAY OTIC
     Route: 001
     Dates: start: 20090808, end: 20090809

REACTIONS (5)
  - FACIAL PALSY [None]
  - JAW DISORDER [None]
  - PHARYNGEAL OEDEMA [None]
  - SWELLING [None]
  - SWOLLEN TONGUE [None]
